FAERS Safety Report 24972465 (Version 1)
Quarter: 2025Q1

REPORT INFORMATION
  Report Type: Report from Study
  Country: US (occurrence: US)
  Receive Date: 20250215
  Receipt Date: 20250215
  Transmission Date: 20250408
  Serious: Yes (Hospitalization, Other)
  Sender: ALEXION PHARMACEUTICALS
  Company Number: US-AstraZeneca-2019SF58018

PATIENT
  Age: 89 Year

DRUGS (2)
  1. NEXIUM [Suspect]
     Active Substance: ESOMEPRAZOLE MAGNESIUM
  2. BRILINTA [Suspect]
     Active Substance: TICAGRELOR

REACTIONS (7)
  - Hypertension [Unknown]
  - Heart rate increased [Unknown]
  - Illness [Unknown]
  - Haemorrhage [Unknown]
  - Hypoacusis [Unknown]
  - Gastric haemorrhage [Unknown]
  - Drug ineffective [Unknown]
